FAERS Safety Report 12808692 (Version 1)
Quarter: 2016Q4

REPORT INFORMATION
  Report Type: Spontaneous
  Country: BG (occurrence: BG)
  Receive Date: 20161004
  Receipt Date: 20161004
  Transmission Date: 20170207
  Serious: Yes (Hospitalization)
  Sender: FDA-Public Use
  Company Number: BG-ASTRAZENECA-2016SF03877

PATIENT
  Age: 73 Year
  Sex: Male

DRUGS (10)
  1. ESOMEPRAZOLE [Concomitant]
     Active Substance: ESOMEPRAZOLE
  2. ZOFEN [Concomitant]
     Active Substance: IBUPROFEN
  3. SORTIS [Concomitant]
     Active Substance: ATORVASTATIN
  4. TRIAMTEREN HYDROCHLORIDE [Concomitant]
     Dosage: 25 MG/12.5 MG DAILY
  5. ACETYLSALICYLIC ACID [Concomitant]
     Active Substance: ASPIRIN
  6. ORAL ANTIDIABETIC THERAPY [Concomitant]
  7. BRILIQUE [Suspect]
     Active Substance: TICAGRELOR
     Indication: ACUTE MYOCARDIAL INFARCTION
     Route: 048
     Dates: start: 20160217
  8. KARDIKET [Concomitant]
     Dosage: ON DEMAND
  9. TRIMETAZIDEINE [Concomitant]
  10. BETALOC ZOK [Concomitant]
     Active Substance: METOPROLOL SUCCINATE

REACTIONS (7)
  - Angina unstable [Unknown]
  - Presbyopia [Unknown]
  - Astigmatism [Unknown]
  - Conjunctival haemorrhage [Unknown]
  - Cataract cortical [Unknown]
  - Arteriosclerotic retinopathy [Unknown]
  - Petechiae [Unknown]

NARRATIVE: CASE EVENT DATE: 20160325
